FAERS Safety Report 5444588-0 (Version None)
Quarter: 2007Q3

REPORT INFORMATION
  Report Type: 
  Country: None (occurrence: None)
  Receive Date: 20070824
  Receipt Date: 20070814
  Transmission Date: 20080115
  Serious: Yes (Other)
  Sender: FDA-Public Use
  Company Number: CHNY2007GB02747

PATIENT
  Age: 59 Year
  Sex: Male

DRUGS (1)
  1. NICOTINE [Suspect]
     Dosage: 2-4 MG, CHEWED ; DOSE DOUBLED, CHEWED

REACTIONS (2)
  - INCORRECT DOSE ADMINISTERED [None]
  - TRANSIENT ISCHAEMIC ATTACK [None]
